FAERS Safety Report 5014909-1 (Version None)
Quarter: 2006Q2

REPORT INFORMATION
  Report Type: 
  Country: None (occurrence: None)
  Receive Date: 20060531
  Receipt Date: 20060503
  Transmission Date: 20061013
  Serious: Yes (Hospitalization)
  Sender: FDA-Public Use
  Company Number: NL-ABBOTT-06P-114-0332281-00

PATIENT
  Sex: Female
  Weight: 58 kg

DRUGS (2)
  1. HUMIRA [Suspect]
     Indication: CROHN'S DISEASE
     Route: 058
     Dates: start: 20060301
  2. METHOTREXATE [Concomitant]
     Indication: CROHN'S DISEASE
     Route: 030
     Dates: start: 20050501

REACTIONS (2)
  - PERITONITIS [None]
  - RECTAL PERFORATION [None]
